FAERS Safety Report 5037058-5 (Version None)
Quarter: 2006Q2

REPORT INFORMATION
  Report Type: 
  Country: None (occurrence: None)
  Receive Date: 20060628
  Receipt Date: 20060623
  Transmission Date: 20061013
  Serious: Yes (Hospitalization)
  Sender: FDA-Public Use
  Company Number: US-JNJFOC-20060406241

PATIENT
  Sex: Male
  Weight: 104.33 kg

DRUGS (11)
  1. DURAGESIC-100 [Suspect]
     Route: 062
  2. DURAGESIC-100 [Suspect]
     Indication: PAIN
     Route: 062
  3. ACTIQ [Concomitant]
     Indication: BREAKTHROUGH PAIN
     Dosage: 1200 MG LOLLIPOP ONE 7-8 TIMES A DAY AS NEEDED, ORAL
     Route: 048
  4. LIDODERM PATCH [Concomitant]
     Indication: PAIN
     Route: 062
  5. MIRALAX [Concomitant]
     Indication: CONSTIPATION
     Dosage: 4 TABLESPOON AT BEDTIME.
     Route: 048
  6. ZOLOFT [Concomitant]
     Indication: DEPRESSION
     Route: 048
  7. LUNESTA [Concomitant]
     Indication: INSOMNIA
     Route: 048
  8. LYRICA [Concomitant]
     Indication: NEURALGIA
     Route: 048
  9. CLONAZEPAM [Concomitant]
     Indication: MUSCLE RELAXANT THERAPY
     Route: 048
  10. LOTREL [Concomitant]
     Indication: BLOOD PRESSURE
     Dosage: 5/10MG 1 IN 24 HOURS.
     Route: 048
  11. METHOCARBAMOL [Concomitant]
     Indication: MUSCLE RELAXANT THERAPY
     Route: 048

REACTIONS (3)
  - PNEUMONIA [None]
  - PYREXIA [None]
  - THERAPEUTIC RESPONSE DECREASED [None]
